FAERS Safety Report 5307232-9 (Version None)
Quarter: 2007Q2

REPORT INFORMATION
  Report Type: 
  Country: None (occurrence: None)
  Receive Date: 20070423
  Receipt Date: 20070423
  Transmission Date: 20071010
  Serious: Yes (Hospitalization)
  Sender: FDA-Public Use
  Company Number: None

PATIENT
  Sex: Male
  Weight: 66.4 kg

DRUGS (6)
  1. CYCLOPHOSPHAMIDE [Suspect]
     Dosage: 940 MG
  2. DOXORUBICIN HYDROCHLORIDE [Suspect]
     Dosage: 76 MG
  3. ETOPOSIDE [Suspect]
     Dosage: 392 MG
  4. PREDNISONE TAB [Suspect]
     Dosage: 600 MG
  5. RITUXIMAB (MOAB C2B8 ANTI CD20, CHIMERIC) [Suspect]
     Dosage: 735 MG
  6. VINCRISTINE SULFATE [Suspect]
     Dosage: 2.32 MG

REACTIONS (5)
  - FEBRILE NEUTROPENIA [None]
  - HYPOTENSION [None]
  - PNEUMONIA [None]
  - SEPSIS [None]
  - WHITE BLOOD CELL COUNT DECREASED [None]
